FAERS Safety Report 10738912 (Version 1)
Quarter: 2015Q1

REPORT INFORMATION
  Report Type: Spontaneous
  Country: FR (occurrence: FR)
  Receive Date: 20150126
  Receipt Date: 20150126
  Transmission Date: 20150721
  Serious: Yes (Hospitalization)
  Sender: FDA-Public Use
  Company Number: FR-PFIZER INC-2015024776

PATIENT
  Age: 15 Year
  Sex: Male

DRUGS (5)
  1. ABILIFY [Suspect]
     Active Substance: ARIPIPRAZOLE
     Dosage: 10 MG, 1X/DAY
     Route: 048
     Dates: start: 20140312, end: 20141120
  2. ABILIFY [Suspect]
     Active Substance: ARIPIPRAZOLE
     Dosage: 20 MG, 1X/DAY
     Route: 048
     Dates: start: 20141120
  3. ZOLOFT [Suspect]
     Active Substance: SERTRALINE HYDROCHLORIDE
     Dosage: 100 MG, 1X/DAY
     Route: 048
     Dates: start: 20141022
  4. TERCIAN [Suspect]
     Active Substance: CYAMEMAZINE
     Dosage: 10 GTT, DAILY
     Route: 048
     Dates: start: 20141022, end: 20141120
  5. TERCIAN [Suspect]
     Active Substance: CYAMEMAZINE
     Dosage: 7 GTT, DAILY (MORE THAN 10 DROPS DAILY IF NEEDED)
     Route: 048
     Dates: start: 20141120

REACTIONS (2)
  - Intentional self-injury [Unknown]
  - Suicide attempt [Not Recovered/Not Resolved]

NARRATIVE: CASE EVENT DATE: 20141114
